FAERS Safety Report 23322512 (Version 2)
Quarter: 2024Q1

REPORT INFORMATION
  Report Type: Spontaneous
  Country: US (occurrence: US)
  Receive Date: 20231220
  Receipt Date: 20240226
  Transmission Date: 20240410
  Serious: Yes (Other)
  Sender: FDA-Public Use
  Company Number: US-RADIUS HEALTH, INC.-2023US006502

PATIENT
  Age: 56 Year
  Sex: Male

DRUGS (2)
  1. TYMLOS [Suspect]
     Active Substance: ABALOPARATIDE
     Indication: Osteoporosis
     Dosage: 80 MICROGRAM, QD
     Route: 058
     Dates: start: 20231121
  2. TYMLOS [Suspect]
     Active Substance: ABALOPARATIDE
     Indication: Osteopenia

REACTIONS (8)
  - Cardiac flutter [Unknown]
  - Toothache [Recovered/Resolved]
  - Dehydration [Recovered/Resolved]
  - Product dose omission in error [Unknown]
  - Fatigue [Unknown]
  - Headache [Recovered/Resolved]
  - Asthenia [Unknown]
  - Arthralgia [Unknown]

NARRATIVE: CASE EVENT DATE: 20231201
